FAERS Safety Report 19185449 (Version 2)
Quarter: 2021Q2

REPORT INFORMATION
  Report Type: Other
  Country: ES (occurrence: ES)
  Receive Date: 20210427
  Receipt Date: 20210520
  Transmission Date: 20210717
  Serious: Yes (Death, Life-Threatening)
  Sender: FDA-Public Use
  Company Number: ES-SHIONOGI, INC-2021000157

PATIENT
  Sex: Male

DRUGS (2)
  1. FETROJA [Suspect]
     Active Substance: CEFIDEROCOL SULFATE TOSYLATE
     Indication: PSEUDOMONAS INFECTION
     Dosage: 2 G, TID
     Route: 041
     Dates: start: 20210407, end: 20210412
  2. FETROJA [Suspect]
     Active Substance: CEFIDEROCOL SULFATE TOSYLATE
     Indication: BACTERIAL INFECTION

REACTIONS (2)
  - Stevens-Johnson syndrome [Recovering/Resolving]
  - Death [Fatal]

NARRATIVE: CASE EVENT DATE: 20210409
